FAERS Safety Report 6433366-1 (Version None)
Quarter: 2009Q4

REPORT INFORMATION
  Report Type: 
  Country: None (occurrence: None)
  Receive Date: 20091105
  Receipt Date: 20091027
  Transmission Date: 20100525
  Serious: Yes (Death, Hospitalization)
  Sender: FDA-Public Use
  Company Number: 2009223219

PATIENT
  Age: 68 Year
  Sex: Male

DRUGS (8)
  1. DALTEPARIN SODIUM [Suspect]
     Indication: LUNG NEOPLASM MALIGNANT
     Dates: start: 20090312
  2. SPIRONOLACTONE [Suspect]
     Dosage: 25 MG, ORAL
     Route: 048
     Dates: end: 20090602
  3. ALBUTEROL [Concomitant]
  4. METFORMIN HCL [Concomitant]
  5. DEXAMETHASONE [Concomitant]
  6. DICLOFENAC [Concomitant]
  7. MORPHINE SULFATE [Concomitant]
  8. ORAMORPH SR [Concomitant]

REACTIONS (1)
  - HYPERKALAEMIA [None]
